FAERS Safety Report 22338552 (Version 1)
Quarter: 2023Q2

REPORT INFORMATION
  Report Type: Spontaneous
  Country: US (occurrence: None)
  Receive Date: 20230518
  Receipt Date: 20230518
  Transmission Date: 20230721
  Serious: No
  Sender: FDA-Public Use
  Company Number: US-ROCHE-3224787

PATIENT
  Sex: Female

DRUGS (3)
  1. ACTEMRA [Suspect]
     Active Substance: TOCILIZUMAB
     Indication: Rheumatoid arthritis
     Dosage: STRENGTH: 162MG/0.9ML
     Route: 058
     Dates: start: 20201120
  2. ACTEMRA [Suspect]
     Active Substance: TOCILIZUMAB
  3. ORENCIA [Concomitant]
     Active Substance: ABATACEPT

REACTIONS (1)
  - Lyme disease [Unknown]
